FAERS Safety Report 9330016 (Version 1)
Quarter: 2013Q2

REPORT INFORMATION
  Report Type: Spontaneous
  Country: US (occurrence: US)
  Receive Date: 20130604
  Receipt Date: 20130604
  Transmission Date: 20140414
  Serious: Yes (Other)
  Sender: FDA-Public Use
  Company Number: US-SANOFI-AVENTIS-2012SA056778

PATIENT
  Age: 63 Year
  Sex: Female
  Weight: 134 kg

DRUGS (3)
  1. LANTUS [Suspect]
     Indication: TYPE 2 DIABETES MELLITUS
     Dosage: DOSE:76 UNIT(S)
     Route: 058
  2. SOLOSTAR [Suspect]
     Indication: TYPE 2 DIABETES MELLITUS
  3. DIFLUCAN [Concomitant]
     Indication: FUNGAL INFECTION
     Dates: start: 2012, end: 2012

REACTIONS (2)
  - Cataract [Unknown]
  - Sinus disorder [Unknown]
